FAERS Safety Report 16726772 (Version 1)
Quarter: 2019Q3

REPORT INFORMATION
  Report Type: Spontaneous
  Country: US (occurrence: US)
  Receive Date: 20190821
  Receipt Date: 20190821
  Transmission Date: 20191005
  Serious: No
  Sender: FDA-Public Use
  Company Number: US-GE HEALTHCARE LIFE SCIENCES-2019CSU002844

PATIENT
  Age: 60 Year
  Sex: Female

DRUGS (3)
  1. BABY ASPIRIN [Concomitant]
     Active Substance: ASPIRIN
     Dosage: UNK, QD
  2. OMNIPAQUE [Suspect]
     Active Substance: IOHEXOL
     Indication: SCAN
     Dosage: 100 ML, SINGLE
     Route: 042
     Dates: start: 20190528, end: 20190528
  3. OMNIPAQUE [Suspect]
     Active Substance: IOHEXOL
     Indication: PULMONARY EMBOLISM

REACTIONS (2)
  - Oral pruritus [Recovered/Resolved]
  - Lip pruritus [Recovered/Resolved]

NARRATIVE: CASE EVENT DATE: 20190528
